FAERS Safety Report 12431524 (Version 1)
Quarter: 2016Q2

REPORT INFORMATION
  Report Type: Spontaneous
  Country: US (occurrence: None)
  Receive Date: 20160602
  Receipt Date: 20160602
  Transmission Date: 20160815
  Serious: No
  Sender: FDA-Public Use
  Company Number: None

PATIENT
  Sex: Female

DRUGS (2)
  1. METFORMIN [Suspect]
     Active Substance: METFORMIN HYDROCHLORIDE
  2. GLIMEPIRIDE. [Suspect]
     Active Substance: GLIMEPIRIDE

REACTIONS (7)
  - Abdominal pain upper [None]
  - Tachycardia [None]
  - Syncope [None]
  - Palpitations [None]
  - Diabetes mellitus inadequate control [None]
  - Headache [None]
  - Throat tightness [None]
